FAERS Safety Report 4981658-5 (Version None)
Quarter: 2006Q2

REPORT INFORMATION
  Report Type: 
  Country: None (occurrence: None)
  Receive Date: 20060421
  Receipt Date: 20060421
  Transmission Date: 20061013
  Serious: Yes (Hospitalization)
  Sender: FDA-Public Use
  Company Number: None

PATIENT
  Age: 77 Year
  Sex: Male
  Weight: 88 kg

DRUGS (5)
  1. OXALIPLATIN [Suspect]
     Indication: OESOPHAGEAL CARCINOMA
     Dosage: 85 MG/M2 EVERY 2 WKS IV
     Route: 042
     Dates: start: 20050228
  2. OXALIPLATIN [Suspect]
     Indication: OESOPHAGEAL CARCINOMA
     Dosage: 85 MG/M2 EVERY 2 WKS IV
     Route: 042
     Dates: start: 20060314
  3. OXALIPLATIN [Suspect]
     Indication: OESOPHAGEAL CARCINOMA
     Dosage: 85 MG/M2 EVERY 2 WKS IV
     Route: 042
     Dates: start: 20060328
  4. CAPECITABINE [Suspect]
     Dosage: 1500 MG/M2 TWICE A DAY PO
     Route: 048
  5. RADIATION (50.4 GY TOTAL) [Suspect]
     Dates: start: 20050228, end: 20060411

REACTIONS (6)
  - ASTHENIA [None]
  - DEHYDRATION [None]
  - OESOPHAGITIS [None]
  - ORAL INTAKE REDUCED [None]
  - PAIN [None]
  - PYREXIA [None]
